FAERS Safety Report 17086942 (Version 3)
Quarter: 2020Q1

REPORT INFORMATION
  Report Type: Spontaneous
  Country: JP (occurrence: JP)
  Receive Date: 20191128
  Receipt Date: 20200227
  Transmission Date: 20200409
  Serious: Yes (Hospitalization)
  Sender: FDA-Public Use
  Company Number: JP-ROCHE-2486221

PATIENT
  Age: 56 Year
  Sex: Male
  Weight: 61 kg

DRUGS (10)
  1. IRINOTECAN HYDROCHLORIDE TRIHYDRATE [IRINOTECAN HYDROCHLORIDE] [Concomitant]
     Active Substance: IRINOTECAN HYDROCHLORIDE
     Indication: COLON CANCER
     Dosage: DOSAGE IS UNCERTAIN.
     Route: 041
     Dates: start: 20180405, end: 20181024
  2. LEVOFOLINATE [LEVOFOLINIC ACID] [Concomitant]
     Active Substance: LEVOLEUCOVORIN
     Indication: COLON CANCER
     Dosage: DOSAGE IS UNCERTAIN.
     Route: 041
     Dates: start: 20180405, end: 20181024
  3. 5-FU [FLUOROURACIL] [Concomitant]
     Active Substance: FLUOROURACIL
     Indication: COLON CANCER
     Route: 040
     Dates: start: 20180405, end: 20181024
  4. VEMLIDY [Concomitant]
     Active Substance: TENOFOVIR ALAFENAMIDE FUMARATE
     Dosage: DOSAGE IS UNCERTAIN.
     Route: 065
     Dates: start: 20170802, end: 20190616
  5. REBAMIPIDE [Concomitant]
     Active Substance: REBAMIPIDE
     Dosage: DOSAGE IS UNCERTAIN.
     Route: 065
     Dates: start: 20180606, end: 20190616
  6. LANSOPRAZOLE. [Concomitant]
     Active Substance: LANSOPRAZOLE
     Dosage: DOSAGE IS UNCERTAIN.
     Route: 065
     Dates: start: 20181024, end: 20190616
  7. AVASTIN [Suspect]
     Active Substance: BEVACIZUMAB
     Indication: COLON CANCER
     Dosage: DOSAGE IS UNCERTAIN.
     Route: 041
     Dates: start: 20180405, end: 20181024
  8. LOXOPROFEN [Suspect]
     Active Substance: LOXOPROFEN
     Indication: PRODUCT USED FOR UNKNOWN INDICATION
     Dosage: DOSE INTERVAL UNCERTAINTY
     Route: 048
     Dates: start: 20180425, end: 20190404
  9. FENELMIN [Concomitant]
     Dosage: DOSAGE IS UNCERTAIN.
     Route: 065
     Dates: start: 20181107, end: 20190616
  10. 5-FU [FLUOROURACIL] [Concomitant]
     Active Substance: FLUOROURACIL
     Dosage: DOSAGE IS UNCERTAIN.
     Route: 041
     Dates: start: 20180405, end: 20181024

REACTIONS (2)
  - Decreased appetite [Not Recovered/Not Resolved]
  - Insulin autoimmune syndrome [Recovering/Resolving]

NARRATIVE: CASE EVENT DATE: 20190404
